FAERS Safety Report 22166620 (Version 1)
Quarter: 2023Q2

REPORT INFORMATION
  Report Type: Spontaneous
  Country: US (occurrence: None)
  Receive Date: 20230401
  Receipt Date: 20230401
  Transmission Date: 20230721
  Serious: No
  Sender: FDA-Public Use
  Company Number: None

PATIENT
  Age: 54 Year
  Sex: Male
  Weight: 112.5 kg

DRUGS (1)
  1. CLEAR EYES MAXIMUM ITCHY EYE RELIEF [Suspect]
     Active Substance: GLYCERIN\NAPHAZOLINE HYDROCHLORIDE\ZINC SULFATE
     Indication: Eye pruritus
     Dates: start: 20230303, end: 20230324

REACTIONS (4)
  - Instillation site erythema [None]
  - Instillation site swelling [None]
  - Lacrimation increased [None]
  - Instillation site irritation [None]

NARRATIVE: CASE EVENT DATE: 20230324
